FAERS Safety Report 4302475-5 (Version None)
Quarter: 2004Q1

REPORT INFORMATION
  Report Type: 
  Country: None (occurrence: None)
  Receive Date: 20040218
  Receipt Date: 20031105
  Transmission Date: 20041129
  Serious: Yes (Other)
  Sender: FDA-Public Use
  Company Number: 200318919US

PATIENT
  Age: 53 Year
  Sex: Female
  Weight: 61 kg

DRUGS (8)
  1. LANTUS [Suspect]
     Indication: DIABETES MELLITUS
     Dosage: 15 U QPM INJ
     Route: 042
     Dates: start: 20010101
  2. MORPHINE [Concomitant]
  3. HUMULIN R [Concomitant]
  4. ISOPHANE INSULIN [Concomitant]
  5. FOSAMAX [Concomitant]
  6. BUMETANIDE [Concomitant]
  7. LIPITOR [Concomitant]
  8. EFFEXOR [Concomitant]

REACTIONS (1)
  - HYPOGLYCAEMIA [None]
